FAERS Safety Report 14690252 (Version 1)
Quarter: 2018Q1

REPORT INFORMATION
  Report Type: Spontaneous
  Country: CA (occurrence: CA)
  Receive Date: 20180328
  Receipt Date: 20180328
  Transmission Date: 20180509
  Serious: Yes (Other)
  Sender: FDA-Public Use
  Company Number: CA-SA-2018SA076463

PATIENT
  Sex: Female
  Weight: 52 kg

DRUGS (13)
  1. TYLENOL [Suspect]
     Active Substance: ACETAMINOPHEN
     Indication: PRODUCT USED FOR UNKNOWN INDICATION
     Route: 065
  2. METFORMIN HYDROCHLORIDE. [Suspect]
     Active Substance: METFORMIN HYDROCHLORIDE
     Indication: PRODUCT USED FOR UNKNOWN INDICATION
     Route: 065
  3. DIAMICRON [Suspect]
     Active Substance: GLICLAZIDE
     Indication: PRODUCT USED FOR UNKNOWN INDICATION
     Route: 065
  4. MICARDIS [Suspect]
     Active Substance: TELMISARTAN
     Indication: PRODUCT USED FOR UNKNOWN INDICATION
     Route: 065
  5. PANTOPRAZOLE [Suspect]
     Active Substance: PANTOPRAZOLE
     Indication: PRODUCT USED FOR UNKNOWN INDICATION
     Route: 048
  6. LEUCOVORIN. [Suspect]
     Active Substance: LEUCOVORIN
     Indication: PRODUCT USED FOR UNKNOWN INDICATION
     Route: 065
  7. BACLOFEN. [Suspect]
     Active Substance: BACLOFEN
     Indication: PRODUCT USED FOR UNKNOWN INDICATION
     Route: 065
  8. JANUVIA [Suspect]
     Active Substance: SITAGLIPTIN PHOSPHATE
     Indication: PRODUCT USED FOR UNKNOWN INDICATION
     Route: 065
  9. PROLIA [Concomitant]
     Active Substance: DENOSUMAB
     Dosage: SOLUTION SUBCUTANEOUS
     Route: 058
  10. ACETAMINOPHEN. [Suspect]
     Active Substance: ACETAMINOPHEN
     Indication: PRODUCT USED FOR UNKNOWN INDICATION
     Dosage: DOSE TAKEN : 1 EVRY 1 DAY
     Route: 065
  11. CYMBALTA [Suspect]
     Active Substance: DULOXETINE HYDROCHLORIDE
     Indication: PRODUCT USED FOR UNKNOWN INDICATION
     Route: 065
  12. LEFLUNOMIDE. [Suspect]
     Active Substance: LEFLUNOMIDE
     Indication: PRODUCT USED FOR UNKNOWN INDICATION
     Route: 048
  13. ROSUVASTATIN CALCIUM. [Suspect]
     Active Substance: ROSUVASTATIN CALCIUM
     Indication: PRODUCT USED FOR UNKNOWN INDICATION
     Route: 065

REACTIONS (21)
  - Joint swelling [Recovering/Resolving]
  - Pain [Recovering/Resolving]
  - Rotator cuff syndrome [Recovering/Resolving]
  - Drug ineffective [Unknown]
  - Haemoglobin increased [Recovering/Resolving]
  - Myalgia [Recovering/Resolving]
  - Osteoporosis [Recovering/Resolving]
  - Rheumatoid arthritis [Recovering/Resolving]
  - Hand deformity [Recovering/Resolving]
  - Hypokinesia [Recovering/Resolving]
  - Pain in extremity [Recovering/Resolving]
  - Bursitis [Recovering/Resolving]
  - Dizziness [Recovering/Resolving]
  - Musculoskeletal pain [Recovering/Resolving]
  - Muscle atrophy [Recovering/Resolving]
  - Scoliosis [Recovering/Resolving]
  - Blood pressure systolic increased [Recovering/Resolving]
  - Joint noise [Recovering/Resolving]
  - Osteoarthritis [Recovering/Resolving]
  - Tendonitis [Recovering/Resolving]
  - Nausea [Recovering/Resolving]
